FAERS Safety Report 12242368 (Version 3)
Quarter: 2017Q1

REPORT INFORMATION
  Report Type: Spontaneous
  Country: US (occurrence: US)
  Receive Date: 20160406
  Receipt Date: 20170109
  Transmission Date: 20170428
  Serious: No
  Sender: FDA-Public Use
  Company Number: US-PFIZER INC-2016171786

PATIENT
  Age: 67 Year
  Sex: Female

DRUGS (2)
  1. LETROZOLE. [Concomitant]
     Active Substance: LETROZOLE
     Dosage: UNK
  2. IBRANCE [Suspect]
     Active Substance: PALBOCICLIB
     Dosage: 125 MG, UNK
     Dates: start: 20160309

REACTIONS (7)
  - Nasal congestion [Unknown]
  - Nausea [Unknown]
  - Cough [Unknown]
  - Depression [Unknown]
  - Joint swelling [Unknown]
  - Anxiety [Unknown]
  - Fatigue [Unknown]
